FAERS Safety Report 6074829-0 (Version None)
Quarter: 2009Q1

REPORT INFORMATION
  Report Type: 
  Country: None (occurrence: None)
  Receive Date: 20090212
  Receipt Date: 20090206
  Transmission Date: 20090719
  Serious: Yes (Hospitalization, Other)
  Sender: FDA-Public Use
  Company Number: PHHY2009JP01892

PATIENT

DRUGS (4)
  1. TEGRETOL [Suspect]
     Indication: CEREBRAL INFARCTION
     Dosage: 200 MG, QD
     Route: 048
  2. TEGRETOL [Suspect]
     Dosage: 300 MG, QD
     Route: 048
  3. AMOBAN [Concomitant]
     Route: 048
  4. BENZALIN [Concomitant]
     Route: 048

REACTIONS (3)
  - ASTHENIA [None]
  - CEREBRAL INFARCTION [None]
  - HALLUCINATION [None]
